FAERS Safety Report 9264923 (Version 1)
Quarter: 2013Q2

REPORT INFORMATION
  Report Type: Spontaneous
  Country: US (occurrence: US)
  Receive Date: 20130501
  Receipt Date: 20130501
  Transmission Date: 20140414
  Serious: Yes (Hospitalization)
  Sender: FDA-Public Use
  Company Number: US-BAYER-2013-052116

PATIENT
  Age: 50 Year
  Sex: Female
  Weight: 79.82 kg

DRUGS (5)
  1. VICODIN [Concomitant]
     Dosage: AS NEEDED
  2. IRON SULFATE [Concomitant]
  3. FOLIC ACID [Concomitant]
  4. COLACE [Concomitant]
  5. YASMIN [Suspect]

REACTIONS (2)
  - Deep vein thrombosis [None]
  - Pulmonary embolism [None]
